FAERS Safety Report 5794423-6 (Version None)
Quarter: 2008Q2

REPORT INFORMATION
  Report Type: 
  Country: None (occurrence: None)
  Receive Date: 20080625
  Receipt Date: 20080611
  Transmission Date: 20081010
  Serious: Yes (Other)
  Sender: FDA-Public Use
  Company Number: S08-UKI-02148-01

PATIENT
  Age: 33 Year
  Sex: Female
  Weight: 60 kg

DRUGS (3)
  1. CITALOPRAM HYDROBROMIDE [Suspect]
     Indication: POSTPARTUM DEPRESSION
     Dosage: 20 MG  PO
     Route: 048
     Dates: start: 20080207, end: 20080401
  2. OMEPRAZOLE [Concomitant]
  3. ZOPICLON [Concomitant]

REACTIONS (2)
  - COUGH [None]
  - HAEMOPTYSIS [None]
